FAERS Safety Report 13287908 (Version 1)
Quarter: 2017Q1

REPORT INFORMATION
  Report Type: Spontaneous
  Country: PT (occurrence: PT)
  Receive Date: 20170302
  Receipt Date: 20170302
  Transmission Date: 20170428
  Serious: Yes (Hospitalization, Other)
  Sender: FDA-Public Use
  Company Number: PHHY2017PT030154

PATIENT
  Age: 46 Year
  Sex: Female

DRUGS (8)
  1. CLONIDINE. [Suspect]
     Active Substance: CLONIDINE
     Indication: HYPERTENSION
     Dosage: 0.3 MG, QD
     Route: 065
  2. METILDOPA [Suspect]
     Active Substance: METHYLDOPA
     Indication: HYPERTENSION
     Dosage: 500 MG, QD
     Route: 065
  3. RILMENIDINE [Suspect]
     Active Substance: RILMENIDINE
     Indication: HYPERTENSION
     Dosage: 2 MG, QD
     Route: 065
  4. VALSARTAN + HCT [Suspect]
     Active Substance: HYDROCHLOROTHIAZIDE\VALSARTAN
     Indication: HYPERTENSION
     Dosage: (160 MG HYDROCHLORTHIAZIDE/25 MG VALSARTAN  MG), QD
     Route: 065
  5. SPIRONOLACTONE. [Suspect]
     Active Substance: SPIRONOLACTONE
     Indication: HYPERTENSION
     Dosage: 100 MG, QD
     Route: 065
  6. PERINDOPRIL+INDAPAMIDE [Suspect]
     Active Substance: INDAPAMIDE\PERINDOPRIL
     Indication: HYPERTENSION
     Dosage: (10/2.5 MG), QD
     Route: 065
  7. BISOPROLOL [Suspect]
     Active Substance: BISOPROLOL
     Indication: HYPERTENSION
     Dosage: 10 MG, QD
     Route: 065
  8. DILTIAZEM. [Suspect]
     Active Substance: DILTIAZEM
     Indication: HYPERTENSION
     Dosage: 300 MG, QD
     Route: 065

REACTIONS (5)
  - Vomiting [Unknown]
  - Blood pressure inadequately controlled [Unknown]
  - Circulatory collapse [Unknown]
  - Renal impairment [Unknown]
  - Hypotension [Unknown]
